FAERS Safety Report 5430871-1 (Version None)
Quarter: 2007Q3

REPORT INFORMATION
  Report Type: 
  Country: None (occurrence: None)
  Receive Date: 20070830
  Receipt Date: 20070102
  Transmission Date: 20080115
  Serious: No
  Sender: FDA-Public Use
  Company Number: A0633244A

PATIENT
  Age: 17 Year
  Sex: Female

DRUGS (2)
  1. WELLBUTRIN [Suspect]
     Indication: DEPRESSION
     Dosage: 450MG TWICE PER DAY
     Route: 048
     Dates: start: 20060301
  2. NAPROXEN [Concomitant]

REACTIONS (1)
  - WEIGHT DECREASED [None]
